FAERS Safety Report 16176819 (Version 3)
Quarter: 2019Q3

REPORT INFORMATION
  Report Type: Spontaneous
  Country: US (occurrence: US)
  Receive Date: 20190409
  Receipt Date: 20190801
  Transmission Date: 20191004
  Serious: Yes (Other)
  Sender: FDA-Public Use
  Company Number: PHEH2019US014876

PATIENT
  Sex: Female

DRUGS (3)
  1. AFINITOR [Suspect]
     Active Substance: EVEROLIMUS
     Dosage: 14 MG
     Route: 065
     Dates: start: 201701
  2. LENVIMA [Suspect]
     Active Substance: LENVATINIB
     Indication: RENAL CANCER
     Dosage: 8 MG, QD
     Route: 048
  3. AFINITOR [Suspect]
     Active Substance: EVEROLIMUS
     Indication: RENAL CANCER
     Dosage: UNK UNK, QD
     Route: 048

REACTIONS (16)
  - Rash pruritic [Unknown]
  - Dry skin [Unknown]
  - Malignant neoplasm progression [Unknown]
  - Oropharyngeal discomfort [Unknown]
  - Erythema [Unknown]
  - Oropharyngeal blistering [Unknown]
  - Rash [Unknown]
  - Adrenal insufficiency [Unknown]
  - Glossodynia [Unknown]
  - Blood pressure increased [Unknown]
  - Speech disorder [Unknown]
  - Diarrhoea [Unknown]
  - Nodule [Unknown]
  - Oral pain [Unknown]
  - Hypothyroidism [Unknown]
  - Transaminases increased [Unknown]
